FAERS Safety Report 13647899 (Version 2)
Quarter: 2017Q3

REPORT INFORMATION
  Report Type: Report from Study
  Country: CA (occurrence: CA)
  Receive Date: 20170613
  Receipt Date: 20170725
  Transmission Date: 20171127
  Serious: Yes (Hospitalization, Disabling)
  Sender: FDA-Public Use
  Company Number: CA-TOLMAR, INC.-2017CA007452

PATIENT

DRUGS (11)
  1. ASA [Concomitant]
     Active Substance: ASPIRIN
  2. ELIGARD [Suspect]
     Active Substance: LEUPROLIDE ACETATE
     Indication: PROSTATE CANCER
     Dosage: 22.5 MG, Q3MONTHS
     Route: 058
     Dates: start: 20170313
  3. DEXILANT [Concomitant]
     Active Substance: DEXLANSOPRAZOLE
  4. VITAMIN D                          /00107901/ [Concomitant]
     Active Substance: ERGOCALCIFEROL
  5. CITALOPRAM [Concomitant]
     Active Substance: CITALOPRAM HYDROBROMIDE
  6. SYNTHROID [Concomitant]
     Active Substance: LEVOTHYROXINE SODIUM
  7. IRBESARTAN. [Concomitant]
     Active Substance: IRBESARTAN
  8. BISOPROLOL [Concomitant]
     Active Substance: BISOPROLOL
  9. GLYBURIDE. [Concomitant]
     Active Substance: GLYBURIDE
  10. METFORMIN [Concomitant]
     Active Substance: METFORMIN HYDROCHLORIDE
  11. FERROUS SULFATE. [Concomitant]
     Active Substance: FERROUS SULFATE

REACTIONS (1)
  - Cerebrovascular accident [Recovering/Resolving]

NARRATIVE: CASE EVENT DATE: 20170323
